FAERS Safety Report 19121160 (Version 1)
Quarter: 2021Q2

REPORT INFORMATION
  Report Type: Spontaneous
  Country: US (occurrence: US)
  Receive Date: 20210412
  Receipt Date: 20210412
  Transmission Date: 20210717
  Serious: Yes (Life-Threatening)
  Sender: FDA-Public Use
  Company Number: None

PATIENT
  Age: 81 Year
  Sex: Male
  Weight: 82.1 kg

DRUGS (8)
  1. VICTOZA [Concomitant]
     Active Substance: LIRAGLUTIDE
  2. ROSUVASTATIN. [Concomitant]
     Active Substance: ROSUVASTATIN
  3. IRBASARTIN [Concomitant]
  4. MULTI?VITAMINS [Concomitant]
  5. AMIODORONE [Concomitant]
     Active Substance: AMIODARONE
  6. OCCASIONAL SELENIUM [Concomitant]
  7. METFORMIN [Concomitant]
     Active Substance: METFORMIN HYDROCHLORIDE
  8. MULTAQ [Suspect]
     Active Substance: DRONEDARONE
     Indication: PRODUCT USED FOR UNKNOWN INDICATION

REACTIONS (6)
  - Suffocation feeling [None]
  - Dizziness [None]
  - Fall [None]
  - Peripheral swelling [None]
  - Dyspnoea exertional [None]
  - Loss of consciousness [None]

NARRATIVE: CASE EVENT DATE: 20200815
